FAERS Safety Report 7770160-3 (Version None)
Quarter: 2011Q3

REPORT INFORMATION
  Report Type: 
  Country: None (occurrence: None)
  Receive Date: 20110920
  Receipt Date: 20110913
  Transmission Date: 20111222
  Serious: Yes (Death)
  Sender: FDA-Public Use
  Company Number: 201110921

PATIENT
  Sex: Male

DRUGS (5)
  1. DILAUDID [Concomitant]
  2. BUPIVACAINE HCL [Concomitant]
  3. LIORESAL [Suspect]
     Indication: MUSCLE SPASTICITY
     Dosage: 230.94 MCG, DAILY, INTRATHECAL
     Route: 037
  4. CLONIDINE [Concomitant]
  5. DROPERIDOL [Concomitant]

REACTIONS (1)
  - DEATH [None]
